FAERS Safety Report 22140104 (Version 2)
Quarter: 2023Q1

REPORT INFORMATION
  Report Type: Spontaneous
  Country: CN (occurrence: CN)
  Receive Date: 20230327
  Receipt Date: 20230330
  Transmission Date: 20230418
  Serious: No
  Sender: FDA-Public Use
  Company Number: CN-Merck Healthcare KGaA-9390396

PATIENT
  Age: 4 Month
  Sex: Female

DRUGS (2)
  1. EUTHYROX [Suspect]
     Active Substance: LEVOTHYROXINE SODIUM
     Indication: Hypothyroidism
     Route: 048
     Dates: start: 20221227
  2. EUTHYROX [Suspect]
     Active Substance: LEVOTHYROXINE SODIUM
     Dosage: ALTERNATELY ADMINISTRATION 0.5 AND 0.25 TABLETS/DAY
     Dates: start: 20230210

REACTIONS (3)
  - Musculoskeletal stiffness [Not Recovered/Not Resolved]
  - Tremor [Unknown]
  - Muscle spasms [Unknown]
